FAERS Safety Report 4766367-X (Version None)
Quarter: 2005Q3

REPORT INFORMATION
  Report Type: 
  Country: None (occurrence: None)
  Receive Date: 20050909
  Receipt Date: 20050825
  Transmission Date: 20060218
  Serious: Yes (Other)
  Sender: FDA-Public Use
  Company Number: L05-CAN-01368-01

PATIENT
  Age: 5 Year
  Sex: Female

DRUGS (2)
  1. PROPRANOLOL [Suspect]
     Indication: HEADACHE
     Dates: start: 20040201
  2. PROPRANOLOL [Suspect]
     Indication: PROPHYLAXIS
     Dates: start: 20040201

REACTIONS (3)
  - BENIGN INTRACRANIAL HYPERTENSION [None]
  - DIPLOPIA [None]
  - PAPILLOEDEMA [None]
